FAERS Safety Report 10098425 (Version 3)
Quarter: 2014Q2

REPORT INFORMATION
  Report Type: Spontaneous
  Country: US (occurrence: US)
  Receive Date: 20140423
  Receipt Date: 20140514
  Transmission Date: 20141212
  Serious: No
  Sender: FDA-Public Use
  Company Number: US-PFIZER INC-2014111963

PATIENT
  Age: 78 Year
  Sex: Female
  Weight: 52.15 kg

DRUGS (3)
  1. LYRICA [Suspect]
     Dosage: 50 MG, 2X/DAY
  2. LYRICA [Suspect]
     Dosage: 50 MG, DAILY
     Dates: start: 20140417, end: 20140418
  3. LYRICA [Suspect]
     Dosage: UNK

REACTIONS (2)
  - Pain [Unknown]
  - Withdrawal syndrome [Unknown]
